FAERS Safety Report 9326320 (Version 1)
Quarter: 2013Q2

REPORT INFORMATION
  Report Type: Spontaneous
  Country: US (occurrence: US)
  Receive Date: 20130604
  Receipt Date: 20130604
  Transmission Date: 20140414
  Serious: No
  Sender: FDA-Public Use
  Company Number: US-009507513-1305USA017384

PATIENT
  Age: 82 Year
  Sex: Female

DRUGS (7)
  1. DULERA [Suspect]
     Indication: CHRONIC OBSTRUCTIVE PULMONARY DISEASE
     Dosage: 2 PUFFS DAILY
     Route: 055
     Dates: start: 20120529, end: 20130508
  2. DULERA [Suspect]
     Indication: ASTHMA
  3. SYNTHROID [Concomitant]
  4. FOSINOPRIL SODIUM [Concomitant]
  5. AMLODIPINE [Concomitant]
  6. ALLOPURINOL [Concomitant]
  7. INDAPAMIDE [Concomitant]

REACTIONS (3)
  - Dysphonia [Not Recovered/Not Resolved]
  - Dyspnoea [Not Recovered/Not Resolved]
  - Cough [Not Recovered/Not Resolved]
